FAERS Safety Report 24684089 (Version 1)
Quarter: 2024Q4

REPORT INFORMATION
  Report Type: Spontaneous
  Country: US (occurrence: US)
  Receive Date: 20241202
  Receipt Date: 20241202
  Transmission Date: 20250115
  Serious: No
  Sender: ALEXION PHARMACEUTICALS
  Company Number: US-PFIZER INC-202400298727

PATIENT
  Age: 64 Year

DRUGS (9)
  1. LYNPARZA [Suspect]
     Active Substance: OLAPARIB
     Dosage: TAKE 2 150MG TABLETS TWICE DAILY
  2. LYNPARZA [Suspect]
     Active Substance: OLAPARIB
     Dosage: TAKE 2 150MG TABLETS TWICE DAILY
  3. LYNPARZA [Suspect]
     Active Substance: OLAPARIB
     Dosage: TAKE 2 150MG TABLETS TWICE DAILY
  4. LYNPARZA [Suspect]
     Active Substance: OLAPARIB
     Dosage: TAKE 2 150MG TABLETS TWICE DAILY
  5. TUCATINIB [Suspect]
     Active Substance: TUCATINIB
     Dosage: TAKE 2 150MG TABLETS TWICE DAILY
  6. TUCATINIB [Suspect]
     Active Substance: TUCATINIB
     Dosage: TAKE 2 150MG TABLETS TWICE DAILY
  7. TUCATINIB [Suspect]
     Active Substance: TUCATINIB
     Dosage: TAKE 2 150MG TABLETS TWICE DAILY
  8. TUCATINIB [Suspect]
     Active Substance: TUCATINIB
     Dosage: TAKE 2 150MG TABLETS TWICE DAILY
  9. CAPECITABINE [Concomitant]
     Active Substance: CAPECITABINE
     Indication: Breast cancer female
     Dosage: UNK

REACTIONS (2)
  - Off label use [Unknown]
  - Product use issue [Unknown]
